FAERS Safety Report 9491947 (Version 2)
Quarter: 2013Q4

REPORT INFORMATION
  Report Type: Spontaneous
  Country: US (occurrence: US)
  Receive Date: 20130830
  Receipt Date: 20131009
  Transmission Date: 20140711
  Serious: No
  Sender: FDA-Public Use
  Company Number: US-PFIZER INC-2013250151

PATIENT
  Sex: Female

DRUGS (2)
  1. LYRICA [Suspect]
     Indication: SURGERY
     Dosage: UNK
  2. LYRICA [Suspect]
     Indication: NEURALGIA

REACTIONS (2)
  - Off label use [Unknown]
  - Neuralgia [Unknown]
